FAERS Safety Report 25466403 (Version 1)
Quarter: 2025Q2

REPORT INFORMATION
  Report Type: Spontaneous
  Country: US (occurrence: US)
  Receive Date: 20250623
  Receipt Date: 20250623
  Transmission Date: 20250716
  Serious: Yes (Hospitalization, Other)
  Sender: RELIANCE GENEMEDIX
  Company Number: US-Reliance-000407

PATIENT
  Sex: Female

DRUGS (1)
  1. CAPECITABINE [Suspect]
     Active Substance: CAPECITABINE
     Indication: Chemotherapy
     Route: 048
     Dates: start: 20240604

REACTIONS (3)
  - Diarrhoea [Unknown]
  - Vomiting [Unknown]
  - Haematochezia [Unknown]

NARRATIVE: CASE EVENT DATE: 20240608
